FAERS Safety Report 9690014 (Version 2)
Quarter: 2013Q4

REPORT INFORMATION
  Report Type: Spontaneous
  Country: FR (occurrence: FR)
  Receive Date: 20131115
  Receipt Date: 20131126
  Transmission Date: 20140711
  Serious: Yes (Other)
  Sender: FDA-Public Use
  Company Number: FR-AMGEN-FRASP2013079475

PATIENT
  Age: 85 Year
  Sex: Female

DRUGS (4)
  1. ARANESP [Suspect]
     Indication: PRODUCT USED FOR UNKNOWN INDICATION
     Dosage: 300 MUG, UNK
     Route: 065
  2. CORTISOL                           /00014602/ [Concomitant]
  3. SOLUPRED                           /00016201/ [Concomitant]
     Dosage: 5 MG, UNK
  4. IMUREL                             /00001501/ [Concomitant]
     Dosage: 25 MG/ 50 MG

REACTIONS (1)
  - Accidental overdose [Unknown]
